FAERS Safety Report 9590483 (Version 2)
Quarter: 2013Q4

REPORT INFORMATION
  Report Type: Spontaneous
  Country: US (occurrence: US)
  Receive Date: 20131003
  Receipt Date: 20131003
  Transmission Date: 20140711
  Serious: No
  Sender: FDA-Public Use
  Company Number: US-AMGEN-USASP2012072312

PATIENT
  Age: 70 Year
  Sex: Female

DRUGS (3)
  1. ENBREL [Suspect]
     Indication: RHEUMATOID ARTHRITIS
     Dosage: 50 MG, QWK
     Dates: start: 20121105
  2. METHOTREXATE [Concomitant]
     Dosage: 4-2.5 MILLIGRAM  ONCE WEEKLY
     Dates: start: 2008
  3. PLAQUENIL                          /00072602/ [Concomitant]
     Dosage: 200 MG, WEEKLY
     Dates: start: 2008

REACTIONS (6)
  - Headache [Not Recovered/Not Resolved]
  - Diarrhoea [Not Recovered/Not Resolved]
  - Dizziness [Not Recovered/Not Resolved]
  - Back pain [Not Recovered/Not Resolved]
  - Musculoskeletal pain [Not Recovered/Not Resolved]
  - Painful respiration [Not Recovered/Not Resolved]
